FAERS Safety Report 4342474-0 (Version None)
Quarter: 2004Q1

REPORT INFORMATION
  Report Type: 
  Country: None (occurrence: None)
  Receive Date: 20040213
  Receipt Date: 20040108
  Transmission Date: 20041129
  Serious: Yes (Other)
  Sender: FDA-Public Use
  Company Number: 355685

PATIENT
  Age: 50 Year
  Sex: Male

DRUGS (1)
  1. PEGASYS [Suspect]
     Indication: DRUG USE FOR UNKNOWN INDICATION
     Dosage: SUBCUTANEOUS
     Route: 058

REACTIONS (1)
  - PLATELET COUNT DECREASED [None]
